FAERS Safety Report 9672419 (Version 1)
Quarter: 2013Q4

REPORT INFORMATION
  Report Type: Spontaneous
  Country: IN (occurrence: None)
  Receive Date: 20131105
  Receipt Date: 20131105
  Transmission Date: 20140711
  Serious: Yes (Life-Threatening, Other)
  Sender: FDA-Public Use
  Company Number: CIP-2013-00211

PATIENT
  Age: 42 Year
  Sex: Female
  Weight: 50 kg

DRUGS (2)
  1. CYTOCARB [Suspect]
     Indication: CERVIX CARCINOMA
     Route: 042
  2. PACLITAXEL (PACLITAXEL) [Concomitant]

REACTIONS (3)
  - Erythema [None]
  - Pruritus [None]
  - Tachycardia [None]
